FAERS Safety Report 10279924 (Version 1)
Quarter: 2014Q3

REPORT INFORMATION
  Report Type: Spontaneous
  Country: US (occurrence: None)
  Receive Date: 20140701
  Receipt Date: 20140701
  Transmission Date: 20150326
  Serious: No
  Sender: FDA-Public Use
  Company Number: None

PATIENT
  Age: 71 Year
  Sex: Male
  Weight: 85.73 kg

DRUGS (1)
  1. METFORMIN [Suspect]
     Active Substance: METFORMIN HYDROCHLORIDE
     Indication: TYPE 2 DIABETES MELLITUS
     Dosage: 4 A DAY TWICE DAILY TWO PILLS MOUTH
     Route: 048

REACTIONS (2)
  - Blood glucose increased [None]
  - Drug ineffective [None]

NARRATIVE: CASE EVENT DATE: 201401
